FAERS Safety Report 10430462 (Version 4)
Quarter: 2015Q1

REPORT INFORMATION
  Report Type: Report from Study
  Country: US (occurrence: US)
  Receive Date: 20140904
  Receipt Date: 20150323
  Transmission Date: 20150720
  Serious: Yes (Hospitalization, Other)
  Sender: FDA-Public Use
  Company Number: US-GILEAD-2014-0113722

PATIENT
  Age: 17 Year
  Sex: Male

DRUGS (5)
  1. COUMADIN [Concomitant]
     Active Substance: WARFARIN SODIUM
     Dosage: UNK
  2. AMBRISENTAN [Suspect]
     Active Substance: AMBRISENTAN
     Indication: PULMONARY ARTERIAL HYPERTENSION
     Dosage: 10 MG, QD
     Route: 065
     Dates: start: 20130222
  3. ADCIRCA [Concomitant]
     Active Substance: TADALAFIL
     Dosage: UNK
  4. REMODULIN [Concomitant]
     Active Substance: TREPROSTINIL
     Dosage: UNK
  5. TYVASO [Concomitant]
     Active Substance: TREPROSTINIL
     Dosage: UNK

REACTIONS (5)
  - Pulmonary arterial hypertension [Unknown]
  - Pyrexia [Unknown]
  - Nasopharyngitis [Unknown]
  - Rhinorrhoea [Unknown]
  - Off label use [Unknown]
